FAERS Safety Report 13372058 (Version 3)
Quarter: 2017Q2

REPORT INFORMATION
  Report Type: Report from Study
  Country: DE (occurrence: DE)
  Receive Date: 20170327
  Receipt Date: 20170605
  Transmission Date: 20170830
  Serious: Yes (Hospitalization)
  Sender: FDA-Public Use
  Company Number: DE-ROCHE-1842720

PATIENT
  Age: 66 Year
  Sex: Female

DRUGS (42)
  1. CARBOPLATIN. [Suspect]
     Active Substance: CARBOPLATIN
     Indication: NON-SMALL CELL LUNG CANCER STAGE IV
     Dosage: MOST RECENT DOSE OF CARBOPLATIN WAS ADMINISTERED ON 11/OCT/2016 PRIOR TO AE ONSET
     Route: 042
     Dates: start: 20161011
  2. CLEMASTIN [Concomitant]
     Active Substance: CLEMASTINE
     Route: 065
     Dates: start: 20161031, end: 20161031
  3. CLEMASTIN [Concomitant]
     Active Substance: CLEMASTINE
     Route: 065
     Dates: start: 20161122, end: 20161122
  4. RANITIDIN [Concomitant]
     Active Substance: RANITIDINE HYDROCHLORIDE
     Indication: PROPHYLACTIC CHEMOTHERAPY
     Route: 065
     Dates: start: 20161011, end: 20161011
  5. RANITIDIN [Concomitant]
     Active Substance: RANITIDINE HYDROCHLORIDE
     Route: 065
     Dates: start: 20161122, end: 20161122
  6. RANITIDIN [Concomitant]
     Active Substance: RANITIDINE HYDROCHLORIDE
     Route: 065
     Dates: start: 20170103, end: 20170103
  7. PANTOZOL [Concomitant]
     Active Substance: PANTOPRAZOLE SODIUM
     Indication: GASTRITIS
     Route: 065
     Dates: start: 20161014, end: 20161019
  8. CLEXANE [Concomitant]
     Active Substance: ENOXAPARIN SODIUM
     Indication: THROMBOSIS PROPHYLAXIS
     Route: 065
     Dates: start: 20161213
  9. RANITIDIN [Concomitant]
     Active Substance: RANITIDINE HYDROCHLORIDE
     Route: 065
     Dates: start: 20161213, end: 20161213
  10. APREPITANT. [Concomitant]
     Active Substance: APREPITANT
     Route: 065
     Dates: start: 20170103, end: 20170105
  11. CIPROFLOXACIN. [Concomitant]
     Active Substance: CIPROFLOXACIN
     Indication: VIRAL UPPER RESPIRATORY TRACT INFECTION
     Route: 065
     Dates: start: 20170307, end: 20170311
  12. GRANISETRON [Concomitant]
     Active Substance: GRANISETRON
     Route: 065
     Dates: start: 20170131, end: 20170131
  13. CLEMASTIN [Concomitant]
     Active Substance: CLEMASTINE
     Indication: PROPHYLACTIC CHEMOTHERAPY
     Route: 065
     Dates: start: 20161011, end: 20161011
  14. CLEMASTIN [Concomitant]
     Active Substance: CLEMASTINE
     Route: 065
     Dates: start: 20170103, end: 20170103
  15. CLEMASTIN [Concomitant]
     Active Substance: CLEMASTINE
     Route: 065
     Dates: start: 20170131, end: 20170131
  16. RANITIDIN [Concomitant]
     Active Substance: RANITIDINE HYDROCHLORIDE
     Route: 065
     Dates: start: 20170131, end: 20170131
  17. APREPITANT. [Concomitant]
     Active Substance: APREPITANT
     Route: 065
     Dates: start: 20161122, end: 20161122
  18. DECORTIN [Concomitant]
     Active Substance: PREDNISONE
     Indication: HYPERSENSITIVITY
     Route: 065
     Dates: start: 20161014, end: 20161018
  19. DEXAMETHASON [Concomitant]
     Active Substance: DEXAMETHASONE
     Indication: PROPHYLACTIC CHEMOTHERAPY
     Route: 065
     Dates: start: 20161011, end: 20161011
  20. GRANISETRON [Concomitant]
     Active Substance: GRANISETRON
     Route: 065
     Dates: start: 20161031, end: 20161031
  21. APREPITANT. [Concomitant]
     Active Substance: APREPITANT
     Route: 065
     Dates: start: 20161213, end: 20161215
  22. SODIUM CHLORIDE. [Concomitant]
     Active Substance: SODIUM CHLORIDE
     Indication: HYPERSENSITIVITY
     Route: 065
  23. SOLU-DECORTIN [Concomitant]
     Active Substance: PREDNISOLONE SODIUM SUCCINATE
     Indication: HYPERSENSITIVITY
     Route: 042
  24. PACLITAXEL. [Suspect]
     Active Substance: PACLITAXEL
     Indication: NON-SMALL CELL LUNG CANCER STAGE IV
     Dosage: MOST RECENT DOSE OF PACLITAXEL WAS ADMINISTERED ON 11/OCT/2016 PRIOR TO AE ONSET
     Route: 042
     Dates: start: 20161011
  25. L-THYROXIN [Concomitant]
     Active Substance: LEVOTHYROXINE SODIUM
     Indication: HYPOTHYROIDISM
  26. CLEMASTIN [Concomitant]
     Active Substance: CLEMASTINE
     Route: 065
     Dates: start: 20161213, end: 20161213
  27. APREPITANT. [Concomitant]
     Active Substance: APREPITANT
     Route: 065
     Dates: start: 20170131, end: 20170202
  28. PANTOZOL [Concomitant]
     Active Substance: PANTOPRAZOLE SODIUM
     Indication: PROPHYLAXIS AGAINST GASTROINTESTINAL ULCER
     Route: 065
     Dates: start: 20170103, end: 20170106
  29. CLONIDIN [Concomitant]
     Active Substance: CLONIDINE
     Indication: HYPERTENSIVE CRISIS
     Route: 065
     Dates: start: 20161213, end: 20161213
  30. BEVACIZUMAB [Suspect]
     Active Substance: BEVACIZUMAB
     Indication: NON-SMALL CELL LUNG CANCER STAGE IV
     Dosage: MOST RECENT DOSE OF BEVACIZUMAB WAS ADMINISTERED ON 11/OCT/2016 PRIOR TO AE ONSET
     Route: 042
     Dates: start: 20161011
  31. GRANISETRON [Concomitant]
     Active Substance: GRANISETRON
     Route: 065
     Dates: start: 20161213, end: 20161213
  32. CIPROFLOXACIN. [Concomitant]
     Active Substance: CIPROFLOXACIN
     Indication: NEUTROPENIA
     Route: 065
     Dates: start: 20161021, end: 20161025
  33. OMEPRAZOL [Concomitant]
     Active Substance: OMEPRAZOLE
     Route: 065
     Dates: start: 20161213, end: 20161217
  34. GRANISETRON [Concomitant]
     Active Substance: GRANISETRON
     Route: 065
     Dates: start: 20161122, end: 20161122
  35. GRANISETRON [Concomitant]
     Active Substance: GRANISETRON
     Route: 065
     Dates: start: 20170103, end: 20170103
  36. RANITIDIN [Concomitant]
     Active Substance: RANITIDINE HYDROCHLORIDE
     Route: 065
     Dates: start: 20161031, end: 20161031
  37. APREPITANT. [Concomitant]
     Active Substance: APREPITANT
     Indication: PROPHYLACTIC CHEMOTHERAPY
     Route: 065
     Dates: start: 20161011, end: 20161013
  38. GLYCILAX [Concomitant]
     Indication: CONSTIPATION
     Route: 065
     Dates: start: 20161015, end: 20161015
  39. LASIX [Concomitant]
     Active Substance: FUROSEMIDE
     Indication: HYPERTENSION
     Route: 065
     Dates: start: 20161213
  40. GRANISETRON [Concomitant]
     Active Substance: GRANISETRON
     Indication: PROPHYLACTIC CHEMOTHERAPY
     Route: 065
     Dates: start: 20161011, end: 20161011
  41. APREPITANT. [Concomitant]
     Active Substance: APREPITANT
     Route: 065
     Dates: start: 20161031, end: 20161031
  42. PREGABALIN. [Concomitant]
     Active Substance: PREGABALIN
     Indication: RHEUMATOID ARTHRITIS
     Route: 065
     Dates: start: 20170314

REACTIONS (1)
  - Arthralgia [Recovered/Resolved]

NARRATIVE: CASE EVENT DATE: 20161013
